FAERS Safety Report 14320068 (Version 40)
Quarter: 2025Q1

REPORT INFORMATION
  Report Type: Spontaneous
  Country: US (occurrence: US)
  Receive Date: 20171222
  Receipt Date: 20250220
  Transmission Date: 20250409
  Serious: Yes (Other)
  Sender: PFIZER
  Company Number: US-PFIZER INC-2017541886

PATIENT
  Age: 68 Year
  Sex: Female
  Weight: 75 kg

DRUGS (13)
  1. XELJANZ XR [Suspect]
     Active Substance: TOFACITINIB CITRATE
     Indication: Osteoarthritis
     Dosage: 11 MG, 1X/DAY
     Route: 048
     Dates: start: 201701
  2. XELJANZ XR [Suspect]
     Active Substance: TOFACITINIB CITRATE
     Indication: Rheumatoid arthritis
     Route: 048
  3. XELJANZ XR [Suspect]
     Active Substance: TOFACITINIB CITRATE
     Dosage: 11 MG, 1X/DAY ( EVERY MORNING WITH FOOD)
     Route: 048
  4. CELEXA [Concomitant]
     Active Substance: CITALOPRAM HYDROBROMIDE
     Indication: Depression
     Dosage: 40 MG, DAILY
  5. MELOXICAM [Concomitant]
     Active Substance: MELOXICAM
     Indication: Antiinflammatory therapy
     Dosage: 10 MG, DAILY
     Dates: start: 201710
  6. ROSUVASTATIN [Concomitant]
     Active Substance: ROSUVASTATIN
     Indication: Blood cholesterol abnormal
  7. ALEVE [Concomitant]
     Active Substance: NAPROXEN SODIUM
  8. DOXYCYCLINE [Concomitant]
     Active Substance: DOXYCYCLINE
  9. OMEPRAZOLE [Concomitant]
     Active Substance: OMEPRAZOLE
  10. CITALOPRAM [Concomitant]
     Active Substance: CITALOPRAM
  11. COLACE [Concomitant]
     Active Substance: DOCUSATE SODIUM
  12. DULOXETINE [Concomitant]
     Active Substance: DULOXETINE
  13. MOTRIN [Concomitant]
     Active Substance: IBUPROFEN

REACTIONS (19)
  - Respiratory tract infection [Unknown]
  - Pneumonia [Unknown]
  - Arthritis infective [Recovered/Resolved]
  - Fall [Unknown]
  - Joint injury [Unknown]
  - Cataract [Recovered/Resolved]
  - Knee arthroplasty [Unknown]
  - Shoulder arthroplasty [Unknown]
  - Hip arthroplasty [Unknown]
  - Pain [Not Recovered/Not Resolved]
  - Neck pain [Unknown]
  - Pain in extremity [Unknown]
  - Arthralgia [Unknown]
  - Feeling abnormal [Unknown]
  - Illness [Unknown]
  - Condition aggravated [Not Recovered/Not Resolved]
  - Malaise [Unknown]
  - Weight increased [Not Recovered/Not Resolved]
  - Product dose omission issue [Unknown]

NARRATIVE: CASE EVENT DATE: 20170901
